FAERS Safety Report 4505151-9 (Version None)
Quarter: 2004Q4

REPORT INFORMATION
  Report Type: 
  Country: None (occurrence: None)
  Receive Date: 20041117
  Receipt Date: 20041117
  Transmission Date: 20050328
  Serious: Yes (Hospitalization)
  Sender: FDA-Public Use
  Company Number: None

PATIENT
  Age: 71 Year
  Sex: Male

DRUGS (12)
  1. METOPROLOL [Suspect]
     Indication: BLOOD PRESSURE ABNORMAL
     Dosage: 25 MG BID
     Dates: start: 20040709
  2. DILTIAZEM [Suspect]
     Indication: BLOOD PRESSURE ABNORMAL
     Dosage: 300 MG QD
     Dates: start: 19981101
  3. GATIFLOXACIN [Concomitant]
  4. WARFARIN SODIUM [Concomitant]
  5. MORPHINE [Concomitant]
  6. PIROXICAM [Concomitant]
  7. TAMSULOSIN [Concomitant]
  8. SILDENAFIL [Concomitant]
  9. COLCHICINE [Concomitant]
  10. FOSINOPRIL SODIUM [Concomitant]
  11. GUAIFENESIN [Concomitant]
  12. ZOCOR [Concomitant]

REACTIONS (1)
  - BRADYCARDIA [None]
